FAERS Safety Report 9866124 (Version 1)
Quarter: 2014Q1

REPORT INFORMATION
  Report Type: Spontaneous
  Country: None (occurrence: US)
  Receive Date: 20140203
  Receipt Date: 20140203
  Transmission Date: 20141002
  Serious: No
  Sender: FDA-Public Use
  Company Number: US-ALLERGAN-1315910US

PATIENT
  Age: 50 Year
  Sex: Female

DRUGS (2)
  1. RESTASIS [Suspect]
     Indication: DRY EYE
     Dosage: UNK
  2. OTC EYE DROPS NOS [Concomitant]
     Indication: DRY EYE

REACTIONS (2)
  - Headache [Recovered/Resolved]
  - Ocular hyperaemia [Recovered/Resolved]
